FAERS Safety Report 4974339-5 (Version None)
Quarter: 2006Q2

REPORT INFORMATION
  Report Type: 
  Country: None (occurrence: None)
  Receive Date: 20060417
  Receipt Date: 20051005
  Transmission Date: 20061013
  Serious: Yes (Hospitalization, Other)
  Sender: FDA-Public Use
  Company Number: PR-MERCK-0510USA06166

PATIENT
  Age: 55 Year
  Sex: Female
  Weight: 68 kg

DRUGS (22)
  1. ASPIRIN [Concomitant]
     Route: 065
  2. TYLENOL (CAPLET) [Concomitant]
     Route: 065
     Dates: start: 19870101
  3. ULTRACET [Concomitant]
     Route: 065
     Dates: start: 19870101
  4. PRILOSEC [Concomitant]
     Indication: GASTROOESOPHAGEAL REFLUX DISEASE
     Route: 065
     Dates: start: 19981214, end: 20010112
  5. PRILOSEC [Concomitant]
     Indication: ULCER
     Route: 065
     Dates: start: 19981214, end: 20010112
  6. CIPRO [Concomitant]
     Indication: ANTIBIOTIC LEVEL THERAPEUTIC
     Route: 065
     Dates: start: 19960908, end: 20040817
  7. XANAX [Concomitant]
     Indication: ANXIETY DISORDER
     Route: 065
     Dates: start: 19981201, end: 20041029
  8. XANAX [Concomitant]
     Indication: PANIC ATTACK
     Route: 065
     Dates: start: 19981201, end: 20041029
  9. VIOXX [Suspect]
     Indication: ARTHRITIS
     Route: 048
     Dates: start: 19990101, end: 20030101
  10. VIOXX [Suspect]
     Indication: BACK PAIN
     Route: 048
     Dates: start: 19990101, end: 20030101
  11. HYZAAR [Concomitant]
     Route: 048
  12. AMBIEN [Concomitant]
     Indication: SLEEP DISORDER THERAPY
     Route: 065
     Dates: start: 19981201, end: 20040601
  13. PAXIL [Concomitant]
     Indication: DEPRESSION
     Route: 065
     Dates: start: 19981201
  14. NORFLEX [Concomitant]
     Indication: MUSCLE RELAXANT THERAPY
     Route: 065
     Dates: start: 19970410, end: 20020612
  15. CLARITIN [Concomitant]
     Indication: HYPERSENSITIVITY
     Route: 065
     Dates: start: 19970410, end: 20001203
  16. SYNTHROID [Concomitant]
     Indication: HYPOTHYROIDISM
     Route: 065
     Dates: start: 19970310
  17. ZIAC [Concomitant]
     Indication: HYPERTENSION
     Route: 065
     Dates: start: 19990405, end: 20020513
  18. FIORICET TABLETS [Concomitant]
     Indication: MIGRAINE
     Route: 065
     Dates: start: 19960817, end: 20041216
  19. ADALAT [Concomitant]
     Indication: ANGINA PECTORIS
     Route: 065
     Dates: start: 19981216, end: 20030124
  20. NORVASC [Concomitant]
     Indication: CARDIAC DISORDER
     Route: 065
     Dates: start: 19960908, end: 20040609
  21. GLUCOVANCE [Concomitant]
     Indication: DIABETES MELLITUS
     Route: 065
     Dates: start: 19970101
  22. TRANSENE [Concomitant]
     Route: 065

REACTIONS (27)
  - ANGINA PECTORIS [None]
  - AORTIC VALVE STENOSIS [None]
  - ARRHYTHMIA [None]
  - ATRIOVENTRICULAR BLOCK FIRST DEGREE [None]
  - CARDIAC DISORDER [None]
  - CARDIOVASCULAR DISORDER [None]
  - CEREBROVASCULAR ACCIDENT [None]
  - COARCTATION OF THE AORTA [None]
  - CONVULSION [None]
  - CORONARY ARTERY DISEASE [None]
  - CORONARY ARTERY STENOSIS [None]
  - DYSPEPSIA [None]
  - DYSPHAGIA [None]
  - EMBOLISM [None]
  - GASTROINTESTINAL DISORDER [None]
  - GASTROINTESTINAL MOTILITY DISORDER [None]
  - GLAUCOMA [None]
  - HYPERTENSION [None]
  - MYOCARDIAL ISCHAEMIA [None]
  - OEDEMA PERIPHERAL [None]
  - OSTEOARTHRITIS [None]
  - OVERDOSE [None]
  - PSYCHOTIC DISORDER [None]
  - PULMONARY CONGESTION [None]
  - RHEUMATOID ARTHRITIS [None]
  - SLEEP APNOEA SYNDROME [None]
  - SYNCOPE [None]
